FAERS Safety Report 8502552-9 (Version None)
Quarter: 2012Q3

REPORT INFORMATION
  Report Type: 
  Country: None (occurrence: None)
  Receive Date: 20120711
  Receipt Date: 20120629
  Transmission Date: 20120928
  Serious: Yes (Hospitalization, Other)
  Sender: FDA-Public Use
  Company Number: US-ELI_LILLY_AND_COMPANY-US201206009791

PATIENT
  Sex: Male
  Weight: 78.458 kg

DRUGS (2)
  1. LYRICA [Concomitant]
     Dosage: 100 MG, BID
     Route: 048
     Dates: start: 20030101
  2. CYMBALTA [Suspect]

REACTIONS (1)
  - CARDIAC OPERATION [None]
